FAERS Safety Report 20020716 (Version 1)
Quarter: 2021Q4

REPORT INFORMATION
  Report Type: Spontaneous
  Country: IT (occurrence: IT)
  Receive Date: 20211101
  Receipt Date: 20211101
  Transmission Date: 20220303
  Serious: Yes (Hospitalization)
  Sender: FDA-Public Use
  Company Number: None

PATIENT
  Age: 62 Year
  Sex: Male

DRUGS (7)
  1. TRIAZOLAM [Suspect]
     Active Substance: TRIAZOLAM
     Indication: Product used for unknown indication
     Dosage: 2.5 MILLIGRAM, TOTAL
     Route: 048
     Dates: start: 20210727
  2. AMIODARONE [Concomitant]
     Active Substance: AMIODARONE
     Indication: Atrial fibrillation
     Dosage: 200 MILLIGRAM
     Route: 048
  3. RAMIPRIL [Concomitant]
     Active Substance: RAMIPRIL
     Indication: Hypertension
     Dosage: 2.5 MILLIGRAM
     Route: 048
  4. BISOPROLOL FUMARATE [Concomitant]
     Active Substance: BISOPROLOL FUMARATE
     Indication: Cardiac failure
     Dosage: 1.25 MILLIGRAM
     Route: 048
  5. FUROSEMIDE [Concomitant]
     Active Substance: FUROSEMIDE
     Dosage: 25 MILLIGRAM
     Route: 048
  6. VALPROATE SODIUM [Concomitant]
     Active Substance: VALPROATE SODIUM
     Indication: Depression
     Dosage: 200 MILLIGRAM
     Route: 048
  7. COUMADIN [Concomitant]
     Active Substance: WARFARIN SODIUM
     Indication: Thrombosis prophylaxis
     Dosage: UNK
     Route: 048

REACTIONS (3)
  - Drug abuse [Recovered/Resolved]
  - Bradycardia [Recovered/Resolved]
  - Sopor [Recovered/Resolved]

NARRATIVE: CASE EVENT DATE: 20210727
